FAERS Safety Report 18443099 (Version 5)
Quarter: 2021Q2

REPORT INFORMATION
  Report Type: Spontaneous
  Country: US (occurrence: US)
  Receive Date: 20201029
  Receipt Date: 20210422
  Transmission Date: 20210717
  Serious: Yes (Disabling, Other)
  Sender: FDA-Public Use
  Company Number: US-AKCEA THERAPEUTICS-2020IS001332

PATIENT
  Age: 66 Year
  Sex: Male
  Weight: 60.82 kg

DRUGS (7)
  1. TEGSEDI [Suspect]
     Active Substance: INOTERSEN SODIUM
     Indication: HEREDITARY NEUROPATHIC AMYLOIDOSIS
     Route: 058
     Dates: start: 20190729
  2. NORTHERA [Concomitant]
     Active Substance: DROXIDOPA
     Route: 065
  3. STRATTERA [Concomitant]
     Active Substance: ATOMOXETINE HYDROCHLORIDE
     Route: 065
  4. ASA [Concomitant]
     Active Substance: ASPIRIN
     Route: 065
  5. IMODIUM [Concomitant]
     Active Substance: LOPERAMIDE HYDROCHLORIDE
     Route: 065
  6. ISSD (INTEGRATED SYRINGE SAFETY DEVICE) [Suspect]
     Active Substance: DEVICE
  7. MVI/01825701/ [Concomitant]
     Route: 065

REACTIONS (11)
  - Nephrolithiasis [Recovered/Resolved]
  - Protein urine present [Recovered/Resolved]
  - Urine ketone body present [Recovered/Resolved]
  - Hereditary neuropathic amyloidosis [Not Recovered/Not Resolved]
  - Crystal urine present [Recovered/Resolved]
  - Platelet count decreased [Recovered/Resolved]
  - Urinary casts [Recovered/Resolved]
  - Red blood cells urine positive [Recovered/Resolved]
  - Urine protein/creatinine ratio increased [Not Recovered/Not Resolved]
  - Urine analysis abnormal [Recovered/Resolved]
  - Urine abnormality [Not Recovered/Not Resolved]

NARRATIVE: CASE EVENT DATE: 20200512
